FAERS Safety Report 24269820 (Version 2)
Quarter: 2024Q3

REPORT INFORMATION
  Report Type: Spontaneous
  Country: SG (occurrence: SG)
  Receive Date: 20240830
  Receipt Date: 20240903
  Transmission Date: 20241017
  Serious: Yes (Hospitalization)
  Sender: PFIZER
  Company Number: SG-PFIZER INC-PV202400111507

PATIENT
  Age: 30 Year
  Sex: Male

DRUGS (5)
  1. TOFACITINIB CITRATE [Suspect]
     Active Substance: TOFACITINIB CITRATE
     Indication: Respiratory failure
     Dosage: 5 MG, 2X/DAY (BD), MAX. DOSE 15 MG/DAY
     Dates: start: 202211
  2. TOFACITINIB CITRATE [Suspect]
     Active Substance: TOFACITINIB CITRATE
     Dosage: 15 MG, DAILY, (MAX DOSE)
  3. METHYLPREDNISOLONE SODIUM SUCCINATE [Concomitant]
     Active Substance: METHYLPREDNISOLONE SODIUM SUCCINATE
     Indication: Respiratory failure
     Dosage: 500 MG, DAILY
     Route: 042
     Dates: start: 202211
  4. METHYLPREDNISOLONE SODIUM SUCCINATE [Concomitant]
     Active Substance: METHYLPREDNISOLONE SODIUM SUCCINATE
     Dosage: 500 MG, DAILY
     Route: 042
     Dates: start: 202301
  5. RITUXIMAB [Concomitant]
     Active Substance: RITUXIMAB
     Indication: Respiratory failure
     Dosage: 1 G, 2 DOSES 14 DAYS APART (2 WEEKS APART)
     Route: 042
     Dates: start: 202211

REACTIONS (2)
  - Hypertransaminasaemia [Recovered/Resolved]
  - Off label use [Unknown]

NARRATIVE: CASE EVENT DATE: 20221101
